FAERS Safety Report 23177295 (Version 1)
Quarter: 2023Q4

REPORT INFORMATION
  Report Type: Spontaneous
  Country: US (occurrence: US)
  Receive Date: 20231113
  Receipt Date: 20231113
  Transmission Date: 20240109
  Serious: No
  Sender: FDA-Public Use
  Company Number: US-SA-SAC20231103000357

PATIENT
  Sex: Male

DRUGS (23)
  1. DUPIXENT [Suspect]
     Active Substance: DUPILUMAB
     Indication: Dermatitis atopic
     Dosage: 300 MG, QOW
     Route: 058
     Dates: start: 2022
  2. VITAMINS NOS [Concomitant]
     Active Substance: VITAMINS
  3. TRAVATAN Z [Concomitant]
     Active Substance: TRAVOPROST
  4. XARELTO [Concomitant]
     Active Substance: RIVAROXABAN
  5. PREDNISONE [Concomitant]
     Active Substance: PREDNISONE
  6. PRAVASTATIN SODIUM [Concomitant]
     Active Substance: PRAVASTATIN SODIUM
  7. NITROGLYCERIN [Concomitant]
     Active Substance: NITROGLYCERIN
     Dosage: 0.4 MG
     Route: 060
  8. METOPROLOL SUCCINATE [Concomitant]
     Active Substance: METOPROLOL SUCCINATE
  9. LORAZEPAM [Concomitant]
     Active Substance: LORAZEPAM
  10. LOPERAMIDE [Concomitant]
     Active Substance: LOPERAMIDE
  11. IRBESARTAN [Concomitant]
     Active Substance: IRBESARTAN
  12. KETOCONAZOLE [Concomitant]
     Active Substance: KETOCONAZOLE
  13. IPRATROPIUM BROMIDE [Concomitant]
     Active Substance: IPRATROPIUM BROMIDE\IPRATROPIUM BROMIDE ANHYDROUS
  14. HYDRALAZINE HCL [Concomitant]
     Active Substance: HYDRALAZINE HYDROCHLORIDE
  15. GUAIFENESIN [Concomitant]
     Active Substance: GUAIFENESIN
  16. LASIX [Concomitant]
     Active Substance: FUROSEMIDE
  17. FLUOCINONIDE [Concomitant]
     Active Substance: FLUOCINONIDE
  18. FLUOCINOLONE ACETONIDE [Concomitant]
     Active Substance: FLUOCINOLONE ACETONIDE
  19. FEXOFENADINE HYDROCHLORIDE [Concomitant]
     Active Substance: FEXOFENADINE HYDROCHLORIDE
  20. FAMOTIDINE [Concomitant]
     Active Substance: FAMOTIDINE
  21. VITAMIN D2 [Concomitant]
     Active Substance: ERGOCALCIFEROL
  22. VITAMIN B12 [Concomitant]
     Active Substance: CYANOCOBALAMIN
  23. ALIGN [Concomitant]
     Active Substance: BIFIDOBACTERIUM LONGUM SUBSP. INFANTIS

REACTIONS (2)
  - Rash macular [Unknown]
  - Therapeutic response decreased [Unknown]
